FAERS Safety Report 4399072-2 (Version None)
Quarter: 2004Q2

REPORT INFORMATION
  Report Type: 
  Country: None (occurrence: None)
  Receive Date: 20040621
  Receipt Date: 20040408
  Transmission Date: 20050107
  Serious: Yes (Death)
  Sender: FDA-Public Use
  Company Number: 200397

PATIENT
  Age: 30 Year
  Sex: Male
  Weight: 76 kg

DRUGS (7)
  1. OXYCONTIN [Suspect]
     Indication: PAIN
     Dosage: 40 MG, Q12H
  2. LORTAB [Suspect]
  3. ACETAMINOPHEN [Suspect]
  4. ALPRAZOLAM [Suspect]
  5. DIPHENHYDRAMINE HCL [Suspect]
  6. ALCOHOL (ETHANOL) [Suspect]
  7. DILAUDID [Concomitant]

REACTIONS (1)
  - MULTIPLE DRUG OVERDOSE ACCIDENTAL [None]
